FAERS Safety Report 14018329 (Version 1)
Quarter: 2017Q3

REPORT INFORMATION
  Report Type: Spontaneous
  Country: US (occurrence: US)
  Receive Date: 20170927
  Receipt Date: 20170927
  Transmission Date: 20171128
  Serious: Yes (Other)
  Sender: FDA-Public Use
  Company Number: None

PATIENT
  Age: 83 Year
  Sex: Female
  Weight: 57 kg

DRUGS (1)
  1. INJECTAFER [Suspect]
     Active Substance: FERRIC CARBOXYMALTOSE
     Indication: BLOOD IRON DECREASED
     Dosage: ?          OTHER FREQUENCY:X1;?
     Route: 041

REACTIONS (3)
  - Fatigue [None]
  - Tinnitus [None]
  - Feeling abnormal [None]

NARRATIVE: CASE EVENT DATE: 20170921
